FAERS Safety Report 23550722 (Version 1)
Quarter: 2024Q1

REPORT INFORMATION
  Report Type: Spontaneous
  Country: SE (occurrence: SE)
  Receive Date: 20240221
  Receipt Date: 20240221
  Transmission Date: 20240409
  Serious: Yes (Disabling)
  Sender: FDA-Public Use
  Company Number: SE-BRISTOL-MYERS SQUIBB COMPANY-2024-014911

PATIENT
  Age: 58 Year
  Sex: Female

DRUGS (1)
  1. SOTYKTU [Suspect]
     Active Substance: DEUCRAVACITINIB
     Indication: Psoriasis
     Dosage: 6 MG X1
     Route: 048
     Dates: start: 202310

REACTIONS (1)
  - Rosacea [Unknown]

NARRATIVE: CASE EVENT DATE: 20231201
